FAERS Safety Report 6187609-2 (Version None)
Quarter: 2009Q2

REPORT INFORMATION
  Report Type: 
  Country: None (occurrence: None)
  Receive Date: 20090511
  Receipt Date: 20090428
  Transmission Date: 20091009
  Serious: Yes (Hospitalization, Other)
  Sender: FDA-Public Use
  Company Number: 430019M08USA

PATIENT
  Age: 38 Year
  Sex: Female

DRUGS (12)
  1. NOVANTRONE [Suspect]
     Indication: MULTIPLE SCLEROSIS
     Dates: start: 20070728, end: 20080501
  2. .. [Suspect]
  3. NOVANTRONE [Suspect]
  4. NOVANTRONE [Suspect]
  5. BETASERON [Suspect]
     Indication: SECONDARY PROGRESSIVE MULTIPLE SCLEROSIS
     Dosage: 8 NOT REPORTED, 8 NOT REPORTED, 6 NOT REPORTED, 8 NOT REPORTED
     Dates: start: 20070728, end: 20080501
  6. BETASERON [Suspect]
     Indication: SECONDARY PROGRESSIVE MULTIPLE SCLEROSIS
     Dosage: 8 NOT REPORTED, 8 NOT REPORTED, 6 NOT REPORTED, 8 NOT REPORTED
     Dates: start: 20071014
  7. TEGRETOL [Concomitant]
  8. LAMICTAL [Concomitant]
  9. BETASERON [Suspect]
  10. BETASERON [Suspect]
  11. BETASERON [Suspect]
  12. BETASERON [Suspect]

REACTIONS (15)
  - AMENORRHOEA [None]
  - ANAEMIA [None]
  - COMPLEX PARTIAL SEIZURES [None]
  - DEPRESSION [None]
  - ECONOMIC PROBLEM [None]
  - FALL [None]
  - GASTRIC ULCER HAEMORRHAGE [None]
  - INJECTION SITE PAIN [None]
  - INSOMNIA [None]
  - LOSS OF CONSCIOUSNESS [None]
  - MENOPAUSE [None]
  - METRORRHAGIA [None]
  - PAIN [None]
  - STRESS [None]
  - WEIGHT DECREASED [None]
